FAERS Safety Report 8328032-1 (Version None)
Quarter: 2012Q2

REPORT INFORMATION
  Report Type: 
  Country: None (occurrence: None)
  Receive Date: 20120430
  Receipt Date: 20120416
  Transmission Date: 20120825
  Serious: Yes (Other)
  Sender: FDA-Public Use
  Company Number: 2012-001544

PATIENT
  Age: 82 Year
  Sex: Female

DRUGS (5)
  1. ACTONEL TRIO (RISEDRONATE SODIUM CALCIUM CARBONATE VITAMIN D3) EFFERVE [Suspect]
     Dosage: 35 MG WEEKLY, ORAL
     Route: 048
     Dates: start: 20090101, end: 20090101
  2. GERODORM (CINOLAZEPAM) [Concomitant]
  3. MICARDIS [Concomitant]
  4. HYPOTHIAZIDE (HYDROCHLOROTHIAZIDE) [Concomitant]
  5. ATORVASTATIN [Concomitant]

REACTIONS (4)
  - BONE EROSION [None]
  - IMPAIRED HEALING [None]
  - WEIGHT BEARING DIFFICULTY [None]
  - ARTHRALGIA [None]
